FAERS Safety Report 8776911 (Version 1)
Quarter: 2012Q4

REPORT INFORMATION
  Report Type: 
  Country: US (occurrence: US)
  Receive Date: 20120911
  Receipt Date: 20120911
  Transmission Date: 20130627
  Serious: Yes (Hospitalization, Other)
  Sender: FDA-Public Use
  Company Number: US-AMGEN-USASP2012056981

PATIENT
  Age: 68 Year
  Sex: Female

DRUGS (1)
  1. ENBREL [Suspect]
     Indication: RHEUMATOID ARTHRITIS
     Dosage: UNK UNK, qwk
     Route: 058
     Dates: start: 20040801

REACTIONS (4)
  - Heart rate irregular [Recovered/Resolved]
  - Blood potassium decreased [Recovered/Resolved]
  - Palpitations [Recovered/Resolved]
  - Heart rate decreased [Unknown]
